FAERS Safety Report 8262581-X (Version None)
Quarter: 2012Q2

REPORT INFORMATION
  Report Type: 
  Country: None (occurrence: None)
  Receive Date: 20120405
  Receipt Date: 20120328
  Transmission Date: 20120825
  Serious: Yes (Hospitalization)
  Sender: FDA-Public Use
  Company Number: US-US-EMD SERONO, INC.-7117014

PATIENT
  Sex: Female

DRUGS (1)
  1. REBIF [Suspect]
     Indication: MULTIPLE SCLEROSIS
     Route: 058
     Dates: start: 20110518

REACTIONS (11)
  - MULTIPLE SCLEROSIS RELAPSE [None]
  - HEMIPARESIS [None]
  - BALANCE DISORDER [None]
  - IRON DEFICIENCY ANAEMIA [None]
  - INFLUENZA LIKE ILLNESS [None]
  - VITAMIN B12 DECREASED [None]
  - PERIPHERAL COLDNESS [None]
  - HYPOAESTHESIA [None]
  - HEAD DISCOMFORT [None]
  - INJECTION SITE ERYTHEMA [None]
  - MUSCULAR WEAKNESS [None]
